FAERS Safety Report 23605564 (Version 5)
Quarter: 2024Q2

REPORT INFORMATION
  Report Type: Spontaneous
  Country: US (occurrence: US)
  Receive Date: 20240307
  Receipt Date: 20240611
  Transmission Date: 20240716
  Serious: Yes (Other)
  Sender: FDA-Public Use
  Company Number: US-SANOFI-01961291

PATIENT
  Age: 13 Year
  Sex: Male
  Weight: 69.4 kg

DRUGS (1)
  1. DUPIXENT [Suspect]
     Active Substance: DUPILUMAB
     Indication: Eosinophilic oesophagitis
     Dosage: 300 MG, QW
     Route: 058
     Dates: start: 20221101, end: 20230719

REACTIONS (11)
  - Multisystem inflammatory syndrome [Recovered/Resolved]
  - Sinus disorder [Recovered/Resolved]
  - Hodgkin^s disease [Recovered/Resolved]
  - Pulmonary mass [Recovered/Resolved]
  - Pulmonary granuloma [Recovered/Resolved]
  - Hepatosplenomegaly [Recovered/Resolved]
  - Dysphagia [Recovering/Resolving]
  - Anaemia [Recovering/Resolving]
  - Inflammation [Recovered/Resolved]
  - Inflammatory marker increased [Recovered/Resolved]
  - Eosinophil count increased [Unknown]

NARRATIVE: CASE EVENT DATE: 20230101
